FAERS Safety Report 9407545 (Version 1)
Quarter: 2013Q3

REPORT INFORMATION
  Report Type: Spontaneous
  Country: US (occurrence: US)
  Receive Date: 20130718
  Receipt Date: 20130718
  Transmission Date: 20140515
  Serious: Yes (Hospitalization)
  Sender: FDA-Public Use
  Company Number: US-BAYER-2013-087009

PATIENT
  Age: 51 Year
  Sex: Female
  Weight: 158.73 kg

DRUGS (15)
  1. YAZ [Suspect]
  2. ALBUTEROL [Concomitant]
     Indication: ASTHMA
     Dosage: UNK
     Route: 045
  3. SINGULAIR [Concomitant]
     Dosage: UNK
     Route: 048
  4. HYCODAN [HYDROCODONE BITARTRATE] [Concomitant]
     Dosage: UNK
     Route: 048
  5. AMOXIL [Concomitant]
     Dosage: UNK
     Route: 048
  6. PREDNISONE [Concomitant]
     Dosage: 20 MG 3 TAB (TABLETS) [TIMES] 4 DAYS, 2 TABS [TIMES] 4 DAYS, 1 TAB [TIMES] 4 DAYS, 1/2 TAB [TIMES] 7
  7. TRIAMTEREN HCT [Concomitant]
     Dosage: 75-50, QD
     Route: 048
  8. HYDROCODONE [Concomitant]
     Dosage: 5/500 [EVERY] 4 HOURS], PRN
     Route: 048
  9. CLONIDINE [Concomitant]
     Indication: BLOOD PRESSURE INCREASED
     Dosage: 0.1 MG, UNK
     Route: 048
  10. SYMBICORT [Concomitant]
     Dosage: 160/4.5, INHALATION
     Route: 045
  11. NASONEX [Concomitant]
     Dosage: UNK
     Route: 045
     Dates: start: 20100623
  12. ATENOLOL [Concomitant]
     Dosage: 100 MG, QD
     Route: 048
  13. IRON [Concomitant]
     Dosage: 325 MG, UNK
     Route: 048
  14. METOPROLOL [Concomitant]
  15. MAXZIDE [Concomitant]

REACTIONS (1)
  - Pulmonary embolism [None]
